FAERS Safety Report 5303773-9 (Version None)
Quarter: 2007Q2

REPORT INFORMATION
  Report Type: 
  Country: None (occurrence: None)
  Receive Date: 20070420
  Receipt Date: 20070418
  Transmission Date: 20071010
  Serious: Yes (Other)
  Sender: FDA-Public Use
  Company Number: US-BRISTOL-MYERS SQUIBB COMPANY-13680830

PATIENT
  Age: 12 Year
  Sex: Male

DRUGS (9)
  1. ETOPOSIDE [Suspect]
     Indication: ACUTE MYELOID LEUKAEMIA
  2. ABELCET [Suspect]
     Indication: ASPERGILLOSIS
     Route: 042
  3. DAUNOMYCIN [Suspect]
     Indication: ACUTE MYELOID LEUKAEMIA
  4. CYTARABINE [Suspect]
     Indication: ACUTE MYELOID LEUKAEMIA
  5. ITRACONAZOLE [Suspect]
     Indication: ASPERGILLOSIS
     Route: 048
  6. THIOGUANINE [Suspect]
     Indication: ACUTE MYELOID LEUKAEMIA
  7. DEXAMETHASONE 0.5MG TAB [Suspect]
     Indication: ACUTE MYELOID LEUKAEMIA
  8. NEUPOGEN [Suspect]
  9. HYPERALIMENTATION [Suspect]
     Indication: ORAL INTAKE REDUCED

REACTIONS (5)
  - AGITATION [None]
  - CATHETER SEPSIS [None]
  - GASTRITIS [None]
  - HYPOKALAEMIA [None]
  - NEPHROGENIC DIABETES INSIPIDUS [None]
